FAERS Safety Report 16132019 (Version 3)
Quarter: 2019Q2

REPORT INFORMATION
  Report Type: Spontaneous
  Country: US (occurrence: US)
  Receive Date: 20190329
  Receipt Date: 20190503
  Transmission Date: 20190711
  Serious: Yes (Death, Life-Threatening, Hospitalization, Other)
  Sender: FDA-Public Use
  Company Number: US-ROCHE-2288184

PATIENT
  Age: 65 Year
  Sex: Female
  Weight: 49.94 kg

DRUGS (8)
  1. AUBAGIO [Suspect]
     Active Substance: TERIFLUNOMIDE
     Indication: MULTIPLE SCLEROSIS
     Route: 048
     Dates: start: 201703, end: 201710
  2. OCREVUS [Suspect]
     Active Substance: OCRELIZUMAB
     Route: 065
     Dates: start: 201801
  3. DALFAMPRIDINE. [Concomitant]
     Active Substance: DALFAMPRIDINE
     Indication: MUSCLE SPASMS
     Route: 048
     Dates: start: 20131004
  4. OCREVUS [Suspect]
     Active Substance: OCRELIZUMAB
     Indication: PROGRESSIVE MULTIPLE SCLEROSIS
     Route: 065
     Dates: start: 20180118
  5. OCREVUS [Suspect]
     Active Substance: OCRELIZUMAB
     Route: 065
     Dates: start: 20180131
  6. OCREVUS [Suspect]
     Active Substance: OCRELIZUMAB
     Route: 065
     Dates: start: 20180727
  7. IBUPROFEN. [Suspect]
     Active Substance: IBUPROFEN
     Indication: ABDOMINAL PAIN UPPER
     Dosage: 2 TAB 3 TIMES A DAY
     Route: 065
     Dates: start: 20180502
  8. IBUPROFEN. [Suspect]
     Active Substance: IBUPROFEN
     Indication: BACK PAIN

REACTIONS (20)
  - Weight decreased [Unknown]
  - Gastritis [Not Recovered/Not Resolved]
  - Cerebrovascular accident [Unknown]
  - Diverticulitis [Not Recovered/Not Resolved]
  - Nausea [Not Recovered/Not Resolved]
  - Anaemia [Unknown]
  - Lymphadenopathy [Unknown]
  - Malaise [Unknown]
  - Gastrointestinal disorder [Unknown]
  - Back pain [Unknown]
  - Abdominal neoplasm [Unknown]
  - Large intestine perforation [Unknown]
  - Hemiparesis [Unknown]
  - Neoplasm malignant [Unknown]
  - Leukocytosis [Unknown]
  - Haematemesis [Unknown]
  - Clostridium difficile colitis [Unknown]
  - Decreased appetite [Unknown]
  - Fatigue [Not Recovered/Not Resolved]
  - Sarcoma [Fatal]

NARRATIVE: CASE EVENT DATE: 201808
